FAERS Safety Report 18338552 (Version 3)
Quarter: 2020Q4

REPORT INFORMATION
  Report Type: Spontaneous
  Country: TW (occurrence: TW)
  Receive Date: 20201002
  Receipt Date: 20201007
  Transmission Date: 20210113
  Serious: Yes (Life-Threatening, Hospitalization, Other)
  Sender: FDA-Public Use
  Company Number: TW-PFIZER INC-2020378918

PATIENT
  Age: 47 Year
  Sex: Male
  Weight: 82.5 kg

DRUGS (2)
  1. METHOTREXATE. [Suspect]
     Active Substance: METHOTREXATE
     Indication: POLYCHONDRITIS
     Dosage: 15 MG, WEEKLY(TOTAL 3 DOSES TAKEN BY THE PATIENT)
     Route: 048
     Dates: start: 201905, end: 2019
  2. PREDNISOLONE. [Suspect]
     Active Substance: PREDNISOLONE
     Indication: POLYCHONDRITIS
     Dosage: 1 MG/KG, 1X/DAY (HIGH DOSE)
     Route: 048
     Dates: start: 201905

REACTIONS (4)
  - Product use in unapproved indication [Unknown]
  - Pneumocystis jirovecii pneumonia [Recovered/Resolved]
  - Off label use [Unknown]
  - Acute respiratory distress syndrome [Recovered/Resolved]

NARRATIVE: CASE EVENT DATE: 2019
